FAERS Safety Report 5263970-8 (Version None)
Quarter: 2007Q1

REPORT INFORMATION
  Report Type: 
  Country: None (occurrence: None)
  Receive Date: 20061213
  Receipt Date: 20051004
  Transmission Date: 20070707
  Serious: Yes (Other)
  Sender: FDA-Public Use
  Company Number: 2005UW14872

PATIENT
  Age: 81 Year
  Sex: Female
  Weight: 79.378 kg

DRUGS (9)
  1. IRESSA [Suspect]
     Indication: LUNG NEOPLASM MALIGNANT
     Dosage: 1 DF DAILY PO
     Route: 048
  2. IRESSA [Suspect]
     Indication: LUNG NEOPLASM MALIGNANT
     Dosage: 4 DF WEEK PO
     Route: 048
  3. ASCORBIC ACID [Concomitant]
  4. ARIMIDEX [Concomitant]
  5. VITAMIN CAP [Concomitant]
  6. CALCIUM CITRATE [Concomitant]
  7. HYDROCHLOROTHIAZIDE [Concomitant]
  8. ZOCOR [Concomitant]
  9. LYSINE [Concomitant]

REACTIONS (5)
  - DIARRHOEA [None]
  - EYE DISORDER [None]
  - NAUSEA [None]
  - RASH [None]
  - SKIN EXFOLIATION [None]
